FAERS Safety Report 8409886-7 (Version None)
Quarter: 2012Q2

REPORT INFORMATION
  Report Type: 
  Country: None (occurrence: None)
  Receive Date: 20120605
  Receipt Date: 20120510
  Transmission Date: 20120825
  Serious: No
  Sender: FDA-Public Use
  Company Number: US-JNJFOC-20120510654

PATIENT
  Sex: Male
  Weight: 73.03 kg

DRUGS (5)
  1. PROPRANOLOL [Concomitant]
     Indication: ILL-DEFINED DISORDER
     Route: 048
  2. XARELTO [Suspect]
     Indication: ATRIAL FIBRILLATION
     Route: 048
     Dates: start: 20120510
  3. ALLOPURINOL [Concomitant]
     Indication: GOUT
     Route: 048
  4. SIMVASTATIN [Concomitant]
     Indication: BLOOD CHOLESTEROL INCREASED
     Route: 048
  5. DOXAZOSIN MESYLATE [Concomitant]
     Indication: ILL-DEFINED DISORDER
     Route: 048

REACTIONS (2)
  - ABDOMINAL PAIN UPPER [None]
  - EPISTAXIS [None]
